FAERS Safety Report 8205897-5 (Version None)
Quarter: 2012Q1

REPORT INFORMATION
  Report Type: 
  Country: None (occurrence: None)
  Receive Date: 20120313
  Receipt Date: 20120305
  Transmission Date: 20120608
  Serious: Yes (Other)
  Sender: FDA-Public Use
  Company Number: PHHY2012AU020408

PATIENT
  Age: 25 Year
  Sex: Female

DRUGS (3)
  1. VENLAFAXINE [Suspect]
     Dosage: UNK UKN, UNK
  2. CANNABIS [Concomitant]
     Dosage: UNK UKN, UNK
  3. CITALOPRAM HYDROBROMIDE [Suspect]
     Indication: EMOTIONAL DISTRESS
     Dosage: UNK UKN, UNK

REACTIONS (7)
  - SUICIDE ATTEMPT [None]
  - AKATHISIA [None]
  - HOMICIDE [None]
  - ABNORMAL BEHAVIOUR [None]
  - DEPRESSION [None]
  - SELF-INJURIOUS IDEATION [None]
  - AGGRESSION [None]
